FAERS Safety Report 5138796-6 (Version None)
Quarter: 2006Q4

REPORT INFORMATION
  Report Type: 
  Country: None (occurrence: None)
  Receive Date: 20061024
  Receipt Date: 20061011
  Transmission Date: 20070319
  Serious: Yes (Hospitalization)
  Sender: FDA-Public Use
  Company Number: CIP06002397

PATIENT
  Age: 73 Year
  Sex: Female

DRUGS (8)
  1. ACTONEL [Suspect]
     Dosage: 35 MG ONCE WEEKLY, ORAL
     Route: 048
     Dates: start: 20040101
  2. COREG [Concomitant]
  3. INSULIN (INSULIN) [Concomitant]
  4. IRON (IRON) [Concomitant]
  5. ESZOPICLONE (ESZOPICLONE) [Concomitant]
  6. ASCORBIC ACID [Concomitant]
  7. HERBAL PREPARATION [Concomitant]
  8. CALCIUM (CALCIUM) [Concomitant]

REACTIONS (4)
  - BACK PAIN [None]
  - HEAT RASH [None]
  - OVARIAN CANCER [None]
  - RASH PRURITIC [None]
